FAERS Safety Report 8309124-X (Version None)
Quarter: 2012Q2

REPORT INFORMATION
  Report Type: 
  Country: None (occurrence: None)
  Receive Date: 20120424
  Receipt Date: 20120416
  Transmission Date: 20120825
  Serious: Yes (Hospitalization, Other)
  Sender: FDA-Public Use
  Company Number: PHHY2012FR033167

PATIENT
  Sex: Male

DRUGS (13)
  1. ALLOPURINOL [Suspect]
     Indication: GOUT
     Dosage: 1 DF, QD
     Route: 048
     Dates: start: 20081001, end: 20120323
  2. TRANDATE [Suspect]
     Indication: HYPERTENSION
     Dosage: 1 DF, TID
     Route: 048
     Dates: start: 20081001
  3. ENALAPRIL MALEATE [Suspect]
     Indication: HYPERTENSION
     Dosage: 1 DF, DAILY
     Route: 048
     Dates: start: 20081001
  4. LERCANIDIPINE [Suspect]
     Indication: HYPERTENSION
     Dosage: 1 DF, DAILY
     Dates: start: 20081001
  5. LASIX [Suspect]
     Indication: CARDIAC FAILURE
     Dosage: 1 DF, PRN
     Route: 048
     Dates: start: 20081001, end: 20101001
  6. ALDACTAZIDE [Suspect]
     Indication: HYPERTENSION
     Dosage: 1 DF, DAILY
     Route: 048
     Dates: start: 20081001
  7. SINTROM [Suspect]
     Dosage: 1.25DF AND 1DF TAKEN ALTERNATIVELY PER DAY
     Route: 048
     Dates: start: 20081001
  8. OMEPRAZOLE [Suspect]
     Indication: GASTRITIS
     Dosage: 1 DF, DAILY
     Route: 048
     Dates: start: 20081001
  9. INFLUVAC [Suspect]
     Dosage: 1 DF, PER YEAR
     Route: 030
     Dates: start: 20111101
  10. LEVOTHYROXINE SODIUM [Suspect]
     Dosage: 1 DF, DAILY
     Route: 048
     Dates: start: 20081001
  11. DIAMICRON [Suspect]
     Indication: TYPE 2 DIABETES MELLITUS
     Dosage: 4 DF, DAILY IN THE MORNING
     Dates: start: 20081001
  12. DIGOXIN [Suspect]
     Route: 048
     Dates: start: 20081001
  13. GLUCOPHAGE [Suspect]
     Route: 048
     Dates: start: 20081001

REACTIONS (4)
  - LEUKOCYTOCLASTIC VASCULITIS [None]
  - CREATININE RENAL CLEARANCE DECREASED [None]
  - VASCULAR PURPURA [None]
  - RENAL INJURY [None]
